FAERS Safety Report 4927432-7 (Version None)
Quarter: 2006Q1

REPORT INFORMATION
  Report Type: 
  Country: None (occurrence: None)
  Receive Date: 20060228
  Receipt Date: 20060221
  Transmission Date: 20060701
  Serious: Yes (Other)
  Sender: FDA-Public Use
  Company Number: US-JNJFOC-20060205211

PATIENT
  Sex: Female
  Weight: 75.75 kg

DRUGS (3)
  1. REMICADE [Suspect]
     Indication: RHEUMATOID ARTHRITIS
     Dosage: DOSAGE RECEIVED:  ^3 VIALS^  DATES OF ADMINISTRATION:  ^9/05 ON 4 TREATMENTS^
     Route: 042
  2. SULFASALAZINE [Concomitant]
     Indication: RHEUMATOID ARTHRITIS
     Dosage: DURATION:  SIX MONTHS
  3. METHOTREXATE [Concomitant]
     Indication: RHEUMATOID ARTHRITIS

REACTIONS (1)
  - CORONARY ARTERIAL STENT INSERTION [None]
